FAERS Safety Report 18311205 (Version 1)
Quarter: 2020Q3

REPORT INFORMATION
  Report Type: Spontaneous
  Country: US (occurrence: US)
  Receive Date: 20200925
  Receipt Date: 20200925
  Transmission Date: 20201103
  Serious: Yes (Hospitalization, Other)
  Sender: FDA-Public Use
  Company Number: US-HIKMA PHARMACEUTICALS USA INC.-US-H14001-20-04403

PATIENT
  Sex: Female

DRUGS (36)
  1. MORPHINE [Suspect]
     Active Substance: MORPHINE
     Indication: CONTUSION
  2. FENTANYL. [Suspect]
     Active Substance: FENTANYL
     Indication: FALL
     Dosage: UNKNOWN
     Route: 065
  3. PERCOCET [Suspect]
     Active Substance: ACETAMINOPHEN\OXYCODONE HYDROCHLORIDE
     Indication: FALL
     Dosage: UNKNOWN
     Route: 065
  4. PERCOCET [Suspect]
     Active Substance: ACETAMINOPHEN\OXYCODONE HYDROCHLORIDE
     Indication: CONTUSION
  5. VICODIN [Suspect]
     Active Substance: ACETAMINOPHEN\HYDROCODONE BITARTRATE
     Indication: CONTUSION
  6. HYDROCODONE [Suspect]
     Active Substance: HYDROCODONE
     Indication: PELVIC FRACTURE
  7. OXYCONTIN [Suspect]
     Active Substance: OXYCODONE HYDROCHLORIDE
     Indication: FALL
     Dosage: UNKNOWN
     Route: 065
  8. OXYCONTIN [Suspect]
     Active Substance: OXYCODONE HYDROCHLORIDE
     Indication: CONTUSION
  9. ATIVAN [Suspect]
     Active Substance: LORAZEPAM
     Indication: FALL
     Dosage: UNKNOWN
     Route: 065
  10. HYDROCODONE [Suspect]
     Active Substance: HYDROCODONE
     Indication: FACIAL BONES FRACTURE
  11. HYDROCODONE [Suspect]
     Active Substance: HYDROCODONE
     Indication: CONTUSION
  12. DILAUDID [Suspect]
     Active Substance: HYDROMORPHONE HYDROCHLORIDE
     Indication: PELVIC FRACTURE
  13. TRAMADOL. [Suspect]
     Active Substance: TRAMADOL
     Indication: FALL
     Dosage: UNKNOWN
     Route: 065
  14. ATIVAN [Suspect]
     Active Substance: LORAZEPAM
     Indication: PELVIC FRACTURE
  15. VICODIN [Suspect]
     Active Substance: ACETAMINOPHEN\HYDROCODONE BITARTRATE
     Indication: PELVIC FRACTURE
  16. ATIVAN [Suspect]
     Active Substance: LORAZEPAM
     Indication: FACIAL BONES FRACTURE
  17. MORPHINE [Suspect]
     Active Substance: MORPHINE
     Indication: PELVIC FRACTURE
  18. FENTANYL. [Suspect]
     Active Substance: FENTANYL
     Indication: PELVIC FRACTURE
  19. FENTANYL. [Suspect]
     Active Substance: FENTANYL
     Indication: CONTUSION
  20. PERCOCET [Suspect]
     Active Substance: ACETAMINOPHEN\OXYCODONE HYDROCHLORIDE
     Indication: PELVIC FRACTURE
  21. DILAUDID [Suspect]
     Active Substance: HYDROMORPHONE HYDROCHLORIDE
     Indication: FALL
     Dosage: UNKNOWN
     Route: 065
  22. DILAUDID [Suspect]
     Active Substance: HYDROMORPHONE HYDROCHLORIDE
     Indication: CONTUSION
  23. TRAMADOL. [Suspect]
     Active Substance: TRAMADOL
     Indication: PELVIC FRACTURE
  24. MORPHINE [Suspect]
     Active Substance: MORPHINE
     Indication: FALL
     Dosage: UNKNOWN
     Route: 065
  25. PERCOCET [Suspect]
     Active Substance: ACETAMINOPHEN\OXYCODONE HYDROCHLORIDE
     Indication: FACIAL BONES FRACTURE
  26. HYDROCODONE [Suspect]
     Active Substance: HYDROCODONE
     Indication: FALL
     Dosage: UNKNOWN
     Route: 065
  27. OXYCONTIN [Suspect]
     Active Substance: OXYCODONE HYDROCHLORIDE
     Indication: FACIAL BONES FRACTURE
  28. FENTANYL. [Suspect]
     Active Substance: FENTANYL
     Indication: FACIAL BONES FRACTURE
  29. DILAUDID [Suspect]
     Active Substance: HYDROMORPHONE HYDROCHLORIDE
     Indication: FACIAL BONES FRACTURE
  30. TRAMADOL. [Suspect]
     Active Substance: TRAMADOL
     Indication: CONTUSION
  31. ATIVAN [Suspect]
     Active Substance: LORAZEPAM
     Indication: CONTUSION
  32. MORPHINE [Suspect]
     Active Substance: MORPHINE
     Indication: FACIAL BONES FRACTURE
  33. VICODIN [Suspect]
     Active Substance: ACETAMINOPHEN\HYDROCODONE BITARTRATE
     Indication: FALL
     Dosage: UNKNOWN
     Route: 065
  34. VICODIN [Suspect]
     Active Substance: ACETAMINOPHEN\HYDROCODONE BITARTRATE
     Indication: FACIAL BONES FRACTURE
  35. OXYCONTIN [Suspect]
     Active Substance: OXYCODONE HYDROCHLORIDE
     Indication: PELVIC FRACTURE
  36. TRAMADOL. [Suspect]
     Active Substance: TRAMADOL
     Indication: FACIAL BONES FRACTURE

REACTIONS (3)
  - Dependence on respirator [Unknown]
  - Dyspnoea [Unknown]
  - Therapeutic product effect increased [Unknown]
